FAERS Safety Report 6888377-9 (Version None)
Quarter: 2010Q3

REPORT INFORMATION
  Report Type: 
  Country: None (occurrence: None)
  Receive Date: 20100730
  Receipt Date: 20100721
  Transmission Date: 20110219
  Serious: Yes (Hospitalization)
  Sender: FDA-Public Use
  Company Number: JP-ROCHE-717602

PATIENT
  Sex: Male
  Weight: 2.4 kg

DRUGS (1)
  1. TAMIFLU [Suspect]
     Indication: PRODUCT USED FOR UNKNOWN INDICATION
     Dosage: NOTE: DOSAGE IS UNCERTAIN.
     Route: 064

REACTIONS (4)
  - CYTOKINE RELEASE SYNDROME [None]
  - ENCEPHALOPATHY [None]
  - MYOCARDITIS [None]
  - PLATELET COUNT DECREASED [None]
